FAERS Safety Report 7995571-2 (Version None)
Quarter: 2011Q4

REPORT INFORMATION
  Report Type: 
  Country: None (occurrence: None)
  Receive Date: 20111220
  Receipt Date: 20111209
  Transmission Date: 20120403
  Serious: Yes (Hospitalization)
  Sender: FDA-Public Use
  Company Number: US-MERCK-1109USA01738

PATIENT
  Age: 38 Year
  Sex: Female
  Weight: 46 kg

DRUGS (10)
  1. COGENTIN [Concomitant]
     Route: 065
  2. HALDOL [Concomitant]
     Route: 030
  3. CELEXA [Concomitant]
     Route: 065
  4. TRUVADA [Concomitant]
     Route: 065
  5. ISENTRESS [Suspect]
     Indication: HIV INFECTION
     Route: 048
  6. PROVENTIL-HFA [Concomitant]
     Route: 065
  7. INVEGA [Concomitant]
     Route: 065
  8. HALDOL [Concomitant]
     Route: 065
  9. NEUROTIN (ACETYLCARNITINE HYDROCHLORIDE) [Concomitant]
     Route: 065
  10. SYNTHROID [Concomitant]
     Route: 065

REACTIONS (1)
  - SCHIZOPHRENIA [None]
